FAERS Safety Report 15931982 (Version 1)
Quarter: 2019Q1

REPORT INFORMATION
  Report Type: Spontaneous
  Country: US (occurrence: US)
  Receive Date: 20190207
  Receipt Date: 20190207
  Transmission Date: 20190417
  Serious: No
  Sender: FDA-Public Use
  Company Number: US-TEVA-2019-US-998363

PATIENT
  Sex: Female
  Weight: 64.47 kg

DRUGS (3)
  1. VALTREX [Concomitant]
     Active Substance: VALACYCLOVIR HYDROCHLORIDE
     Indication: ORAL HERPES
     Dates: start: 2015
  2. NUVIGIL [Suspect]
     Active Substance: ARMODAFINIL
     Indication: NARCOLEPSY
     Dosage: 200 MILLIGRAM DAILY;
     Dates: start: 201708
  3. NUVIGIL [Suspect]
     Active Substance: ARMODAFINIL
     Indication: CATAPLEXY

REACTIONS (1)
  - Maternal exposure during pregnancy [Unknown]
